FAERS Safety Report 6583649-X (Version None)
Quarter: 2010Q1

REPORT INFORMATION
  Report Type: 
  Country: None (occurrence: None)
  Receive Date: 20100216
  Receipt Date: 20100209
  Transmission Date: 20100710
  Serious: Yes (Other)
  Sender: FDA-Public Use
  Company Number: US-ALLERGAN-1000198US

PATIENT
  Age: 40 Year
  Sex: Male

DRUGS (9)
  1. BOTOX COSMETIC [Suspect]
     Indication: SKIN WRINKLING
     Dosage: 84 UNITS, SINGLE
     Route: 030
     Dates: start: 20091104, end: 20091104
  2. BOTOX COSMETIC [Suspect]
     Dosage: UNK
     Dates: start: 20090414, end: 20090414
  3. BOTOX COSMETIC [Suspect]
     Dosage: UNK
     Dates: start: 20090420, end: 20090420
  4. BOTOX COSMETIC [Suspect]
     Dosage: UNK
     Dates: start: 20090708, end: 20090708
  5. BOTOX COSMETIC [Suspect]
     Dosage: UNK
     Dates: start: 20090721, end: 20090721
  6. BOTOX COSMETIC [Suspect]
     Dosage: UNK
     Dates: start: 20090904, end: 20090904
  7. ISENTRESS [Concomitant]
     Indication: HIV INFECTION
  8. TRUVADA [Concomitant]
     Indication: HIV INFECTION
  9. ACYCLOVIR [Concomitant]
     Indication: HIV INFECTION

REACTIONS (1)
  - FACIAL PARESIS [None]
